FAERS Safety Report 7675523 (Version 3)
Quarter: 2014Q1

REPORT INFORMATION
  Report Type: Spontaneous
  Country: US (occurrence: US)
  Receive Date: 20101119
  Receipt Date: 20140117
  Transmission Date: 20141002
  Serious: Yes (Other)
  Sender: FDA-Public Use
  Company Number: US-BAYER-201041709NA

PATIENT
  Age: 15 Year
  Sex: Female
  Weight: 58.96 kg

DRUGS (7)
  1. YAZ [Suspect]
     Indication: DYSMENORRHOEA
     Route: 048
  2. YAZ [Suspect]
     Indication: DYSFUNCTIONAL UTERINE BLEEDING
  3. NAPROXEN [Concomitant]
     Dosage: UNK
     Dates: start: 20080812, end: 20080912
  4. VALTREX [Concomitant]
     Indication: ORAL HERPES
     Dosage: UNK
     Dates: start: 20081106
  5. ACYCLOVIR [ACICLOVIR] [Concomitant]
     Indication: ORAL HERPES
     Dosage: UNK
     Dates: start: 20081106
  6. ZANTAC [Concomitant]
     Dosage: 300 MG, UNK
     Dates: start: 20081113
  7. PROMETHAZINE [Concomitant]
     Dosage: 25 MG, UNK
     Dates: start: 20081113

REACTIONS (3)
  - Gallbladder disorder [Unknown]
  - Cholecystitis chronic [Unknown]
  - Biliary dyskinesia [None]
